FAERS Safety Report 8492630-5 (Version None)
Quarter: 2012Q3

REPORT INFORMATION
  Report Type: 
  Country: None (occurrence: None)
  Receive Date: 20120706
  Receipt Date: 20120628
  Transmission Date: 20120928
  Serious: Yes (Other)
  Sender: FDA-Public Use
  Company Number: US-MILLENNIUM PHARMACEUTICALS, INC.-2012-04609

PATIENT
  Age: 76 Year
  Sex: Female
  Weight: 164.2 kg

DRUGS (1)
  1. VELCADE [Suspect]
     Indication: MULTIPLE MYELOMA
     Dosage: 2.28 MG, 1/WEEK
     Route: 042
     Dates: start: 20110617, end: 20120224

REACTIONS (2)
  - COLON CANCER METASTATIC [None]
  - NEOPLASM MALIGNANT [None]
